FAERS Safety Report 8318299-8 (Version None)
Quarter: 2012Q2

REPORT INFORMATION
  Report Type: 
  Country: None (occurrence: None)
  Receive Date: 20120426
  Receipt Date: 20120426
  Transmission Date: 20120825
  Serious: No
  Sender: FDA-Public Use
  Company Number: None

PATIENT
  Sex: Female
  Weight: 42.2 kg

DRUGS (1)
  1. ELOXATIN [Suspect]
     Dosage: 254 MG

REACTIONS (5)
  - BLOOD PRESSURE INCREASED [None]
  - PHARYNGEAL OEDEMA [None]
  - DYSPNOEA [None]
  - THROAT TIGHTNESS [None]
  - STRIDOR [None]
